FAERS Safety Report 6901767-0 (Version None)
Quarter: 2010Q3

REPORT INFORMATION
  Report Type: 
  Country: None (occurrence: None)
  Receive Date: 20100803
  Receipt Date: 20100721
  Transmission Date: 20110219
  Serious: No
  Sender: FDA-Public Use
  Company Number: US-ELI_LILLY_AND_COMPANY-US201007007681

PATIENT
  Age: 65 Year
  Sex: Male

DRUGS (1)
  1. CIALIS [Suspect]
     Indication: ERECTILE DYSFUNCTION

REACTIONS (10)
  - ARTHRITIS [None]
  - BLOOD CHOLESTEROL INCREASED [None]
  - BLOOD TESTOSTERONE DECREASED [None]
  - DIABETES MELLITUS [None]
  - DIABETIC NEUROPATHY [None]
  - ERECTILE DYSFUNCTION [None]
  - GASTROOESOPHAGEAL REFLUX DISEASE [None]
  - HYPERTENSION [None]
  - THERAPEUTIC RESPONSE DECREASED [None]
  - VISUAL IMPAIRMENT [None]
